FAERS Safety Report 5195051-6 (Version None)
Quarter: 2006Q4

REPORT INFORMATION
  Report Type: 
  Country: None (occurrence: None)
  Receive Date: 20061229
  Receipt Date: 20061221
  Transmission Date: 20070319
  Serious: Yes (Hospitalization)
  Sender: FDA-Public Use
  Company Number: JP-JNJFOC-20061200534

PATIENT
  Sex: Male
  Weight: 63 kg

DRUGS (19)
  1. INFLIXIMAB [Suspect]
     Dosage: DOSE 3MG/KG, 6MG/KG, OR 10MG/KG
  2. INFLIXIMAB [Suspect]
     Dosage: DOSE 3MG/KG, 6MG/KG, OR 10MG/KG
  3. INFLIXIMAB [Suspect]
     Dosage: DOSE 3MG/KG, 6MG/KG, OR 10MG/KG
  4. INFLIXIMAB [Suspect]
     Dosage: DOSE 3MG/KG, 6MG/KG, OR 10MG/KG
  5. INFLIXIMAB [Suspect]
     Dosage: DOSE 3MG/KG, 6MG/KG, OR 10MG/KG
  6. INFLIXIMAB [Suspect]
  7. INFLIXIMAB [Suspect]
  8. INFLIXIMAB [Suspect]
     Indication: RHEUMATOID ARTHRITIS
  9. FOLIAMIN [Concomitant]
     Indication: PROPHYLAXIS
     Dosage: START DATE ^BEFORE STUDY TREATMENT^
     Route: 048
  10. ALFACALCIDOL [Concomitant]
     Indication: OSTEOPOROSIS
     Dosage: START DATE ^BEFORE STUDY TREATMENT^
     Route: 048
  11. DILTIAZEM HCL [Concomitant]
     Indication: HYPERTENSION
     Dosage: START DATE ^BEFORE STUDY TREATMENT^
     Route: 048
  12. CYTOTEC [Concomitant]
     Indication: GASTROINTESTINAL DISORDER THERAPY
     Dosage: START DATE ^BEFORE STUDY TREATMENT^  200 MCG/DAY IN 2 DIVIDED DOSES
     Route: 048
  13. METALCAPTASE [Concomitant]
     Dosage: START DATE ^BEFORE STUDY TREATMENT^  200 MCG/DAY IN 2 DIVIDED DOSES
     Route: 048
  14. OMEPRAZOLE [Concomitant]
     Indication: GASTROINTESTINAL DISORDER THERAPY
     Dosage: START DATE ^BEFORE STUDY TREATMENT^
     Route: 048
  15. PREDONINE [Concomitant]
     Indication: RHEUMATOID ARTHRITIS
     Route: 048
  16. VOLTAREN [Concomitant]
     Dosage: START DATE ^BEFORE STUDY TREATMENT^  75 MG/DAY IN 2 DIVIDED DOSES
     Route: 048
  17. LIPITOR [Concomitant]
     Indication: HYPERLIPIDAEMIA
     Route: 048
  18. NIZORAL [Concomitant]
     Indication: RASH
     Dosage: ^ADEQUATE DOSE^
     Route: 061
  19. METOLATE [Concomitant]
     Indication: RHEUMATOID ARTHRITIS
     Route: 048

REACTIONS (1)
  - OSTEONECROSIS [None]
